FAERS Safety Report 16594454 (Version 4)
Quarter: 2019Q3

REPORT INFORMATION
  Report Type: Report from Study
  Country: AR (occurrence: AR)
  Receive Date: 20190718
  Receipt Date: 20190924
  Transmission Date: 20191004
  Serious: Yes (Hospitalization)
  Sender: FDA-Public Use
  Company Number: PHHO2019AR007202

PATIENT
  Age: 59 Year
  Sex: Female
  Weight: 55.4 kg

DRUGS (2)
  1. COMPARATOR FULVESTRANT [Suspect]
     Active Substance: FULVESTRANT
     Indication: BREAST CANCER
     Dosage: 500 MG, Q4W
     Route: 042
     Dates: start: 20170315
  2. BYL719 [Suspect]
     Active Substance: ALPELISIB
     Indication: BREAST CANCER
     Dosage: 200 MG, QD
     Route: 048
     Dates: start: 20170315

REACTIONS (2)
  - Dyspnoea [Not Recovered/Not Resolved]
  - Dyspnoea [Recovered/Resolved]

NARRATIVE: CASE EVENT DATE: 20190703
